FAERS Safety Report 19287451 (Version 2)
Quarter: 2021Q2

REPORT INFORMATION
  Report Type: Spontaneous
  Country: CN (occurrence: CN)
  Receive Date: 20210522
  Receipt Date: 20210619
  Transmission Date: 20210717
  Serious: No
  Sender: FDA-Public Use
  Company Number: CN-LUPIN PHARMACEUTICALS INC.-2021-07557

PATIENT
  Age: 33 Year
  Sex: Female

DRUGS (5)
  1. DIPYRIDAMOLE. [Suspect]
     Active Substance: DIPYRIDAMOLE
     Indication: DEAFNESS NEUROSENSORY
     Dosage: 15 MILLIGRAM, BID
     Route: 042
  2. METHYLPREDNISOLONE. [Suspect]
     Active Substance: METHYLPREDNISOLONE
     Indication: DEAFNESS NEUROSENSORY
     Dosage: 0.4 MILLILITER, FIVE TIMES ONCE EVERY 2 DAYS
  3. LIDOCAINE. [Suspect]
     Active Substance: LIDOCAINE
     Indication: DEAFNESS NEUROSENSORY
     Dosage: 0.1 MILLILITER, FIVE TIMES ONCE EVERY 2 DAYS
  4. GINKGO [Suspect]
     Active Substance: GINKGO
     Indication: DEAFNESS NEUROSENSORY
     Dosage: UNK? LEAF EXTRACT
     Route: 042
  5. ALPROSTADIL. [Suspect]
     Active Substance: ALPROSTADIL
     Indication: DEAFNESS NEUROSENSORY
     Dosage: 10 MILLIGRAM, QD
     Route: 042

REACTIONS (1)
  - Exposure during pregnancy [Unknown]
